FAERS Safety Report 5645449-4 (Version None)
Quarter: 2008Q1

REPORT INFORMATION
  Report Type: 
  Country: None (occurrence: None)
  Receive Date: 20080229
  Receipt Date: 20070430
  Transmission Date: 20080703
  Serious: No
  Sender: FDA-Public Use
  Company Number: US-BRISTOL-MYERS SQUIBB COMPANY-13765441

PATIENT

DRUGS (1)
  1. TAXOL [Suspect]

REACTIONS (2)
  - BACK PAIN [None]
  - FLUSHING [None]
